FAERS Safety Report 18754602 (Version 2)
Quarter: 2021Q1

REPORT INFORMATION
  Report Type: Spontaneous
  Country: US (occurrence: US)
  Receive Date: 20210119
  Receipt Date: 20210303
  Transmission Date: 20210419
  Serious: No
  Sender: FDA-Public Use
  Company Number: US-FDC LIMITED-2105508

PATIENT
  Age: 45 Year
  Sex: Female
  Weight: 63.64 kg

DRUGS (1)
  1. CIPROFLOXACIN. [Suspect]
     Active Substance: CIPROFLOXACIN
     Indication: EYE INFECTION
     Route: 047
     Dates: start: 20201229

REACTIONS (4)
  - Deposit eye [Recovered/Resolved]
  - Foreign body sensation in eyes [Recovered/Resolved]
  - Product physical issue [Unknown]
  - Eye pain [Recovered/Resolved]
